FAERS Safety Report 13463963 (Version 1)
Quarter: 2017Q2

REPORT INFORMATION
  Report Type: Spontaneous
  Country: US (occurrence: US)
  Receive Date: 20170420
  Receipt Date: 20170420
  Transmission Date: 20170830
  Serious: Yes (Other)
  Sender: FDA-Public Use
  Company Number: US-ROCHE-707803

PATIENT
  Sex: Male

DRUGS (3)
  1. ACCUTANE [Suspect]
     Active Substance: ISOTRETINOIN
     Dosage: IN TWO DIVIDED DOSES
     Route: 065
  2. ACCUTANE [Suspect]
     Active Substance: ISOTRETINOIN
     Indication: ACNE
     Dosage: FORM: PILL; IN TWO DIVIDED DOSES
     Route: 065
  3. ACCUTANE [Suspect]
     Active Substance: ISOTRETINOIN
     Dosage: IN TWO DIVIDED DOSES
     Route: 065
     Dates: start: 19860213, end: 19860317

REACTIONS (1)
  - Crohn^s disease [Unknown]
